FAERS Safety Report 19810541 (Version 1)
Quarter: 2021Q3

REPORT INFORMATION
  Report Type: Spontaneous
  Country: US (occurrence: US)
  Receive Date: 20210909
  Receipt Date: 20210909
  Transmission Date: 20211014
  Serious: Yes (Other)
  Sender: FDA-Public Use
  Company Number: US-MYLANLABS-2021M1059944

PATIENT
  Age: 46 Year
  Sex: Female

DRUGS (7)
  1. ACETAMINOPHEN W/OXYCODONE [Concomitant]
     Active Substance: ACETAMINOPHEN\OXYCODONE HYDROCHLORIDE
     Indication: PRODUCT USED FOR UNKNOWN INDICATION
     Dosage: 10 MILLIGRAM, Q6H, AS NEEDED
     Route: 065
  2. GABAPENTIN. [Concomitant]
     Active Substance: GABAPENTIN
     Indication: PRODUCT USED FOR UNKNOWN INDICATION
     Dosage: 600 MILLIGRAM, THREE TIMES DAILY
     Route: 065
  3. TRAZODONE [Interacting]
     Active Substance: TRAZODONE HYDROCHLORIDE
     Indication: PRODUCT USED FOR UNKNOWN INDICATION
     Dosage: 50 MILLIGRAM, QD, AT NIGHT
     Route: 065
  4. CLONAZEPAM. [Concomitant]
     Active Substance: CLONAZEPAM
     Indication: PRODUCT USED FOR UNKNOWN INDICATION
     Dosage: 0.5 MILLIGRAM, BID
     Route: 065
  5. PENTOXIFYLLINE. [Concomitant]
     Active Substance: PENTOXIFYLLINE
     Indication: PRODUCT USED FOR UNKNOWN INDICATION
     Dosage: 400 MILLIGRAM, THREE TIMES DAILY
     Route: 065
  6. ZOLPIDEM [Concomitant]
     Active Substance: ZOLPIDEM TARTRATE
     Indication: PRODUCT USED FOR UNKNOWN INDICATION
     Dosage: 10 MILLIGRAM, QD EVERY NIGHT
     Route: 065
  7. TRAMADOL. [Suspect]
     Active Substance: TRAMADOL
     Indication: PRODUCT USED FOR UNKNOWN INDICATION
     Dosage: 50 MILLIGRAM, THREE TIMES DAILY, AS NECESSARY
     Route: 065

REACTIONS (2)
  - Drug interaction [Recovered/Resolved]
  - Serotonin syndrome [Recovered/Resolved]
